FAERS Safety Report 5253834-8 (Version None)
Quarter: 2007Q1

REPORT INFORMATION
  Report Type: 
  Country: None (occurrence: None)
  Receive Date: 20070227
  Receipt Date: 20070215
  Transmission Date: 20070707
  Serious: Yes (Hospitalization)
  Sender: FDA-Public Use
  Company Number: 235837

PATIENT
  Age: 3 Year
  Sex: Male
  Weight: 9.1 kg

DRUGS (10)
  1. NUTROPIN AQ [Suspect]
     Indication: GROWTH HORMONE DEFICIENCY
     Dosage: 0.5 MG, QD, SUBCUTANEOUS
     Route: 058
     Dates: start: 20040315, end: 20061125
  2. ADVAIR DISKUS 100/50 [Concomitant]
  3. ALBUTEROL (ALBUTEROL/ALBUTEROL SULFATE) [Concomitant]
  4. FLOVENT [Concomitant]
  5. PERIACTIN [Concomitant]
  6. POLY-VI-FLOR (MULTIVITAMINS NOS, SODIUM FLUORIDE) [Concomitant]
  7. SINGULAIR [Concomitant]
  8. XOPENEX [Concomitant]
  9. TESTOSTERONE ENANTHATE (TESTOSTERONE ENANTHATE) [Concomitant]
  10. PULMICORT [Concomitant]

REACTIONS (7)
  - BIOPSY BONE MARROW ABNORMAL [None]
  - CONGENITAL APLASTIC ANAEMIA [None]
  - COUGH [None]
  - HYPOGLYCAEMIA [None]
  - ORAL INTAKE REDUCED [None]
  - PYREXIA [None]
  - THROMBOSIS [None]
